FAERS Safety Report 21951730 (Version 3)
Quarter: 2023Q1

REPORT INFORMATION
  Report Type: Spontaneous
  Country: US (occurrence: US)
  Receive Date: 20230203
  Receipt Date: 20230329
  Transmission Date: 20230418
  Serious: No
  Sender: FDA-Public Use
  Company Number: US-BRISTOL-MYERS SQUIBB COMPANY-2023-015668

PATIENT
  Age: 71 Year
  Sex: Female

DRUGS (2)
  1. SPRYCEL [Suspect]
     Active Substance: DASATINIB
     Indication: Chronic myeloid leukaemia
     Route: 048
     Dates: start: 202301
  2. SPRYCEL [Suspect]
     Active Substance: DASATINIB
     Route: 048
     Dates: start: 202212

REACTIONS (6)
  - Asthenia [Unknown]
  - General physical health deterioration [Unknown]
  - Feeling abnormal [Unknown]
  - Fatigue [Unknown]
  - Decreased interest [Unknown]
  - Skin disorder [Unknown]
